FAERS Safety Report 9224721 (Version 7)
Quarter: 2014Q1

REPORT INFORMATION
  Report Type: Spontaneous
  Country: US (occurrence: US)
  Receive Date: 20130411
  Receipt Date: 20140210
  Transmission Date: 20141002
  Serious: Yes (Hospitalization, Other)
  Sender: FDA-Public Use
  Company Number: US-PFIZER INC-2013113138

PATIENT
  Age: 37 Year
  Sex: Female
  Weight: 62.59 kg

DRUGS (6)
  1. FIBERCON [Suspect]
     Indication: CONSTIPATION
     Dosage: UNK, 2X/DAY
     Dates: start: 201303
  2. LYRICA [Suspect]
     Indication: EPILEPSY
     Dosage: 50 MG, 3X/DAY
  3. LYRICA [Suspect]
     Indication: CONVULSION
     Dosage: 200 MG, 2X/DAY
     Route: 048
  4. EFFEXOR XR [Suspect]
     Dosage: 75 MG, 2X/DAY
     Route: 048
  5. BACLOFEN [Suspect]
     Indication: PAIN
     Dosage: UNK
  6. VIMPAT [Concomitant]
     Indication: CONVULSION
     Dosage: 50 MG, 3X/DAY

REACTIONS (10)
  - Convulsion [Unknown]
  - Vision blurred [Not Recovered/Not Resolved]
  - Depression [Unknown]
  - Crying [Unknown]
  - Hyperacusis [Not Recovered/Not Resolved]
  - Headache [Unknown]
  - Quality of life decreased [Unknown]
  - Hearing impaired [Not Recovered/Not Resolved]
  - Drug ineffective [Unknown]
  - Somnolence [Unknown]
